FAERS Safety Report 7961811-9 (Version None)
Quarter: 2011Q4

REPORT INFORMATION
  Report Type: 
  Country: None (occurrence: None)
  Receive Date: 20111207
  Receipt Date: 20111201
  Transmission Date: 20120403
  Serious: Yes (Death)
  Sender: FDA-Public Use
  Company Number: US-GILEAD-2011-0047307

PATIENT
  Sex: Female

DRUGS (3)
  1. LETAIRIS [Suspect]
     Indication: PULMONARY HYPERTENSION
     Dosage: 10 MG, UNK
     Route: 048
     Dates: start: 20100722, end: 20111122
  2. EPOPROSTENOL SODIUM [Concomitant]
  3. LETAIRIS [Suspect]
     Indication: SCLERODERMA

REACTIONS (3)
  - INTERSTITIAL LUNG DISEASE [None]
  - SCLERODERMA [None]
  - PULMONARY HYPERTENSION [None]
